FAERS Safety Report 12886889 (Version 1)
Quarter: 2016Q4

REPORT INFORMATION
  Report Type: Spontaneous
  Country: IT (occurrence: IT)
  Receive Date: 20161026
  Receipt Date: 20161026
  Transmission Date: 20170207
  Serious: Yes (Other)
  Sender: FDA-Public Use
  Company Number: IT-NOVOPROD-515396

PATIENT
  Age: 69 Year
  Sex: Male

DRUGS (6)
  1. HUMALOG [Suspect]
     Active Substance: INSULIN LISPRO
     Indication: TYPE 1 DIABETES MELLITUS
     Dosage: 44 IU
     Route: 058
     Dates: start: 20150101
  2. ASCRIPTIN [Concomitant]
     Active Substance: ASPIRIN
     Route: 048
  3. METFORMIN [Concomitant]
     Active Substance: METFORMIN HYDROCHLORIDE
  4. LYRICA [Concomitant]
     Active Substance: PREGABALIN
     Route: 048
  5. LEVEMIR [Suspect]
     Active Substance: INSULIN DETEMIR
     Indication: TYPE 1 DIABETES MELLITUS
     Dosage: 36 IU, QD
     Route: 058
     Dates: start: 20150101
  6. INEGY [Concomitant]
     Active Substance: EZETIMIBE\SIMVASTATIN
     Route: 048

REACTIONS (2)
  - Paraesthesia oral [Recovered/Resolved]
  - Hypoglycaemia [Recovered/Resolved]

NARRATIVE: CASE EVENT DATE: 20160402
